FAERS Safety Report 5202465-4 (Version None)
Quarter: 2007Q1

REPORT INFORMATION
  Report Type: 
  Country: None (occurrence: None)
  Receive Date: 20070109
  Receipt Date: 20061228
  Transmission Date: 20070707
  Serious: Yes (Other)
  Sender: FDA-Public Use
  Company Number: PHBS2006FI20104

PATIENT
  Age: 50 Year

DRUGS (1)
  1. SANDIMMUNE [Suspect]
     Indication: ECZEMA
     Dates: start: 20060601

REACTIONS (2)
  - BUNDLE BRANCH BLOCK LEFT [None]
  - CHEST DISCOMFORT [None]
